FAERS Safety Report 11787143 (Version 2)
Quarter: 2015Q4

REPORT INFORMATION
  Report Type: Report from Study
  Country: US (occurrence: US)
  Receive Date: 20151130
  Receipt Date: 20151221
  Transmission Date: 20160305
  Serious: Yes (Other)
  Sender: FDA-Public Use
  Company Number: US-GILEAD-2015-0184074

PATIENT
  Age: 65 Year
  Sex: Male

DRUGS (3)
  1. RANOLAZINE [Suspect]
     Active Substance: RANOLAZINE
     Indication: ANGINA PECTORIS
     Dosage: 1000 MG, UNK
     Route: 048
  2. XARELTO [Concomitant]
     Active Substance: RIVAROXABAN
     Indication: PULMONARY EMBOLISM
     Dosage: UNK
     Route: 048
  3. XARELTO [Concomitant]
     Active Substance: RIVAROXABAN
     Indication: THROMBOSIS

REACTIONS (2)
  - Thrombosis [Unknown]
  - Pulmonary embolism [Unknown]
